FAERS Safety Report 14899174 (Version 1)
Quarter: 2018Q2

REPORT INFORMATION
  Report Type: Report from Study
  Country: ES (occurrence: ES)
  Receive Date: 20180516
  Receipt Date: 20180516
  Transmission Date: 20180711
  Serious: Yes (Other)
  Sender: FDA-Public Use
  Company Number: ES-TEVA-2018-ES-892859

PATIENT
  Age: 15 Month
  Sex: Female

DRUGS (10)
  1. KETAMINA (352A) [Concomitant]
     Active Substance: KETAMINE
     Dosage: 10 MG
     Route: 065
     Dates: start: 20170113, end: 20170204
  2. LEVETIRACETAM (1167A) [Concomitant]
     Active Substance: LEVETIRACETAM
     Route: 065
     Dates: start: 20170113, end: 20170204
  3. TRIMETOPRIMA/SULFAMETOXAZOL [Concomitant]
     Dosage: MONDAY, WEDNESDAY AND FRIDAY
     Route: 065
     Dates: start: 20170113, end: 20170204
  4. METAMIZOL (111A) [Concomitant]
     Active Substance: METAMIZOL SODIUM
     Dosage: 1 CC C/6-8 HOURS
     Route: 065
     Dates: start: 20170113, end: 20170204
  5. MESNA (1078A) [Suspect]
     Active Substance: MESNA
     Dosage: BEFORE, 4 HOURS AND 8 HOURS OF THE DOSE OF CYCLOPHOSPHAMIDE
     Route: 065
     Dates: start: 20170114, end: 20170118
  6. PANTOPRAZOL (7275A) [Concomitant]
     Active Substance: PANTOPRAZOLE
     Dosage: C/24 HOURS
     Route: 065
     Dates: start: 20170113, end: 20170204
  7. CICLOFOSFAMIDA (120A) [Suspect]
     Active Substance: CYCLOPHOSPHAMIDE
     Indication: PRECURSOR T-LYMPHOBLASTIC LYMPHOMA/LEUKAEMIA
     Route: 065
     Dates: start: 20170114, end: 20170118
  8. ETOPOSIDO (518A) [Suspect]
     Active Substance: ETOPOSIDE
     Indication: PRECURSOR T-LYMPHOBLASTIC LYMPHOMA/LEUKAEMIA
     Route: 042
     Dates: start: 20170114, end: 20170118
  9. PARACETAMOL (12A) [Concomitant]
     Active Substance: ACETAMINOPHEN
     Dosage: 80MG C/6-8 HOURS IF REQUIRED SI PRECISA
     Route: 065
     Dates: start: 20170113, end: 20170204
  10. MIDAZOLAM (2256A) [Concomitant]
     Route: 065
     Dates: start: 20170113, end: 20170204

REACTIONS (1)
  - Hepatitis [Recovered/Resolved]

NARRATIVE: CASE EVENT DATE: 20170116
